FAERS Safety Report 19028268 (Version 6)
Quarter: 2024Q2

REPORT INFORMATION
  Report Type: Spontaneous
  Country: CA (occurrence: CA)
  Receive Date: 20210319
  Receipt Date: 20240424
  Transmission Date: 20240716
  Serious: Yes (Other)
  Sender: FDA-Public Use
  Company Number: CA-AUROBINDO-AUR-APL-2020-047532

PATIENT
  Age: 55 Year
  Sex: Female

DRUGS (21)
  1. CANDESARTAN [Suspect]
     Active Substance: CANDESARTAN
     Indication: Migraine
     Dosage: 16 MILLIGRAM
     Route: 048
  2. CANDESARTAN [Suspect]
     Active Substance: CANDESARTAN
     Indication: Blood pressure abnormal
     Dosage: 8 MILLIGRAM
     Route: 048
  3. CANDESARTAN [Suspect]
     Active Substance: CANDESARTAN
     Dosage: 16 MILLIGRAM
     Route: 048
  4. CANDESARTAN [Suspect]
     Active Substance: CANDESARTAN
     Dosage: 8 MILLIGRAM
     Route: 048
  5. CANDESARTAN [Suspect]
     Active Substance: CANDESARTAN
     Dosage: 8 MILLIGRAM
     Route: 048
  6. FLUOXETINE [Suspect]
     Active Substance: FLUOXETINE HYDROCHLORIDE
     Indication: Migraine
     Dosage: 20 MILLIGRAM
     Route: 065
  7. PANTOPRAZOLE [Suspect]
     Active Substance: PANTOPRAZOLE
     Indication: Migraine
     Dosage: 40 MILLIGRAM, TWO TIMES A DAY
     Route: 065
  8. TOPIRAMATE [Suspect]
     Active Substance: TOPIRAMATE
     Indication: Migraine
     Dosage: UNK
     Route: 065
  9. TOPIRAMATE [Suspect]
     Active Substance: TOPIRAMATE
     Indication: Migraine
     Dosage: UNK
     Route: 065
  10. AIMOVIG [Suspect]
     Active Substance: ERENUMAB-AOOE
     Indication: Migraine
     Dosage: 14 MILLIGRAM(1 EVERY 1 MONTHS)
     Route: 058
  11. AIMOVIG [Suspect]
     Active Substance: ERENUMAB-AOOE
     Dosage: 14 MILLIGRAM(1 EVERY 1 MONTHS)
     Route: 065
  12. CANDESARTAN CILEXETIL [Suspect]
     Active Substance: CANDESARTAN CILEXETIL
     Indication: Migraine
     Dosage: 8 MILLIGRAM
     Route: 048
  13. CANDESARTAN CILEXETIL [Suspect]
     Active Substance: CANDESARTAN CILEXETIL
     Indication: Blood pressure abnormal
     Dosage: 8 MILLIGRAM
     Route: 048
  14. CANDESARTAN CILEXETIL [Suspect]
     Active Substance: CANDESARTAN CILEXETIL
     Dosage: 16 MILLIGRAM
     Route: 048
  15. CANDESARTAN CILEXETIL [Suspect]
     Active Substance: CANDESARTAN CILEXETIL
     Dosage: 16 MILLIGRAM
     Route: 048
  16. CANDESARTAN CILEXETIL [Suspect]
     Active Substance: CANDESARTAN CILEXETIL
     Dosage: 8 MILLIGRAM
     Route: 048
  17. FERROUS FUMARATE [Concomitant]
     Active Substance: FERROUS FUMARATE
     Indication: Product used for unknown indication
     Dosage: 300 MILLIGRAM
     Route: 065
  18. MODAFINIL [Concomitant]
     Active Substance: MODAFINIL
     Indication: Product used for unknown indication
     Dosage: 100 MILLIGRAM, TWO TIMES A DAY
     Route: 065
  19. NAPROXEN [Concomitant]
     Active Substance: NAPROXEN
     Indication: Product used for unknown indication
     Dosage: 500 MILLIGRAM
     Route: 065
  20. OSTO-D2 [Concomitant]
     Indication: Product used for unknown indication
     Dosage: 50000.0 INTERNATIONAL UNIT, EVERY WEEK
     Route: 065
  21. IRON [Concomitant]
     Active Substance: IRON
     Indication: Product used for unknown indication
     Dosage: 300 MILLIGRAM
     Route: 065

REACTIONS (22)
  - Heart rate abnormal [Recovering/Resolving]
  - Blood pressure measurement [Recovering/Resolving]
  - Drug intolerance [Recovering/Resolving]
  - Dysstasia [Recovering/Resolving]
  - Eye pain [Recovering/Resolving]
  - Headache [Recovering/Resolving]
  - Heart rate [Recovering/Resolving]
  - Hypertension [Recovering/Resolving]
  - Hypoaesthesia oral [Recovering/Resolving]
  - Nausea [Recovering/Resolving]
  - Pain of skin [Recovering/Resolving]
  - Photophobia [Recovering/Resolving]
  - Swelling face [Recovering/Resolving]
  - Concussion [Recovering/Resolving]
  - Blood pressure fluctuation [Recovering/Resolving]
  - Migraine [Recovering/Resolving]
  - Fall [Recovering/Resolving]
  - Therapeutic product effect decreased [Recovering/Resolving]
  - Off label use [Recovering/Resolving]
  - Drug ineffective for unapproved indication [Recovering/Resolving]
  - Drug ineffective [Recovering/Resolving]
  - Product use in unapproved indication [Recovering/Resolving]
